FAERS Safety Report 15122012 (Version 1)
Quarter: 2018Q3

REPORT INFORMATION
  Report Type: Report from Study
  Country: IN (occurrence: IN)
  Receive Date: 20180709
  Receipt Date: 20180709
  Transmission Date: 20181010
  Serious: Yes (Other)
  Sender: FDA-Public Use
  Company Number: IN-MYLANLABS-2018M1049074

PATIENT

DRUGS (5)
  1. PHENYLEPHRINE [Concomitant]
     Active Substance: PHENYLEPHRINE\PHENYLEPHRINE HYDROCHLORIDE
     Indication: HYPOTENSION
     Route: 064
  2. BUPIVACAINE. [Suspect]
     Active Substance: BUPIVACAINE
     Indication: SPINAL ANAESTHESIA
     Dosage: RECEIVED BUPIVACAINE AND FENTANYL MIXTURE, WHICH WAS PREPARED BY USING 0.5% HYPERBARIC BUPIVACAIN...
     Route: 064
  3. SALINE                             /00075401/ [Concomitant]
     Active Substance: SODIUM CHLORIDE
     Indication: VEHICLE SOLUTION USE
     Dosage: RECEIVED BUPIVACAINE AND FENTANYL MIXTURE, WHICH WAS PREPARED BY USING 0.5% HYPERBARIC BUPIVACAIN...
     Route: 064
  4. FENTANYL. [Suspect]
     Active Substance: FENTANYL
     Indication: SPINAL ANAESTHESIA
     Dosage: RECEIVED BUPIVACAINE AND FENTANYL MIXTURE, WHICH WAS PREPARED BY USING 0.5% HYPERBARIC BUPIVACAIN...
     Route: 064
  5. LACTATED RINGERS SOLUTION [Concomitant]
     Active Substance: CALCIUM CHLORIDE\POTASSIUM CHLORIDE\SODIUM CHLORIDE\SODIUM LACTATE
     Indication: PRODUCT USED FOR UNKNOWN INDICATION
     Route: 064

REACTIONS (2)
  - Foetal exposure during delivery [Recovered/Resolved]
  - Foetal heart rate deceleration abnormality [Recovered/Resolved]
